FAERS Safety Report 4702357-0 (Version None)
Quarter: 2005Q2

REPORT INFORMATION
  Report Type: 
  Country: None (occurrence: None)
  Receive Date: 20050629
  Receipt Date: 20040914
  Transmission Date: 20051028
  Serious: No
  Sender: FDA-Public Use
  Company Number: US-GLAXOSMITHKLINE-A0525623A

PATIENT
  Sex: Female

DRUGS (17)
  1. VENTOLIN [Suspect]
     Indication: ASTHMA
     Dosage: 2PUFF SIX TIMES PER DAY
     Route: 055
     Dates: start: 19800101
  2. ADVAIR [Concomitant]
  3. SPIRIVA [Concomitant]
  4. SINGULAIR [Concomitant]
  5. ENTEX PSE [Concomitant]
  6. NEBULIZER [Concomitant]
  7. RHINOCORT [Concomitant]
  8. ZYRTEC [Concomitant]
  9. OXYCONTIN [Concomitant]
  10. NEURONTIN [Concomitant]
  11. ACIPHEX [Concomitant]
  12. PROMETRIUM [Concomitant]
  13. ESTRATEST [Concomitant]
  14. FUROSEMIDE [Concomitant]
  15. POTASSIUM CHLORIDE [Concomitant]
  16. AMBIEN [Concomitant]
  17. VIOXX [Concomitant]

REACTIONS (1)
  - TREMOR [None]
